FAERS Safety Report 9457734 (Version 1)
Quarter: 2013Q3

REPORT INFORMATION
  Report Type: Spontaneous
  Country: AU (occurrence: None)
  Receive Date: 20130812
  Receipt Date: 20130812
  Transmission Date: 20140515
  Serious: Yes (Life-Threatening)
  Sender: FDA-Public Use
  Company Number: AG-2013-014845

PATIENT
  Age: 75 Year
  Sex: Male

DRUGS (9)
  1. CHLORAMBUCIL [Suspect]
     Indication: CHRONIC LYMPHOCYTIC LEUKAEMIA
     Dosage: 3 IN 1 CYCLICAL
     Route: 048
     Dates: start: 20110504
  2. RITUXIMAB (RITUXIMAB) [Suspect]
     Dosage: PER CYCLE (UKNOWN CYCLICAL)
     Route: 042
     Dates: start: 20110504
  3. SOMAC [Concomitant]
  4. SPIRIVA [Concomitant]
  5. LIPITOR [Concomitant]
  6. SALBUTAMOL [Concomitant]
  7. BICOR [Concomitant]
  8. FOLIC ACID [Concomitant]
  9. AVAPRO [Concomitant]

REACTIONS (3)
  - Septic shock [None]
  - Urinary tract infection [None]
  - Escherichia infection [None]
